FAERS Safety Report 5472157-5 (Version None)
Quarter: 2007Q3

REPORT INFORMATION
  Report Type: 
  Country: None (occurrence: None)
  Receive Date: 20070928
  Receipt Date: 20070920
  Transmission Date: 20080115
  Serious: Yes (Hospitalization)
  Sender: FDA-Public Use
  Company Number: JP-ABBOTT-07P-087-0418033-00

PATIENT
  Age: 4 Year
  Sex: Female
  Weight: 15 kg

DRUGS (2)
  1. CLARITH DRY SYRUP [Suspect]
     Indication: OTITIS MEDIA ACUTE
     Route: 048
     Dates: start: 20070703, end: 20070720
  2. AMBROXOL HYDROCHLORIDE [Suspect]
     Indication: OTITIS MEDIA ACUTE
     Route: 048
     Dates: start: 20070703, end: 20070720

REACTIONS (3)
  - ANAEMIA HAEMOLYTIC AUTOIMMUNE [None]
  - PALLOR [None]
  - VOMITING [None]
